FAERS Safety Report 25221279 (Version 2)
Quarter: 2025Q2

REPORT INFORMATION
  Report Type: Spontaneous
  Country: CA (occurrence: CA)
  Receive Date: 20250421
  Receipt Date: 20250506
  Transmission Date: 20250716
  Serious: Yes (Hospitalization, Other)
  Sender: MYLAN
  Company Number: CA-MYLANLABS-2025M1033878

PATIENT
  Age: 17 Year
  Sex: Female

DRUGS (23)
  1. PREGABALIN [Suspect]
     Active Substance: PREGABALIN
     Indication: Pain
  2. PREGABALIN [Suspect]
     Active Substance: PREGABALIN
     Indication: Injection site pain
  3. KETAMINE [Suspect]
     Active Substance: KETAMINE
     Indication: Pain
  4. KETAMINE [Suspect]
     Active Substance: KETAMINE
     Indication: Injection site pain
  5. LIDOCAINE [Suspect]
     Active Substance: LIDOCAINE
     Indication: Pain
  6. LIDOCAINE [Suspect]
     Active Substance: LIDOCAINE
     Indication: Injection site pain
  7. NAPROXEN [Suspect]
     Active Substance: NAPROXEN
     Indication: Pain
  8. NAPROXEN [Suspect]
     Active Substance: NAPROXEN
     Indication: Injection site pain
  9. DULOXETINE [Suspect]
     Active Substance: DULOXETINE
     Indication: Pain
  10. DULOXETINE [Suspect]
     Active Substance: DULOXETINE
     Indication: Injection site pain
  11. VOLTAREN [Suspect]
     Active Substance: DICLOFENAC SODIUM
     Indication: Pain
  12. VOLTAREN [Suspect]
     Active Substance: DICLOFENAC SODIUM
     Indication: Injection site pain
  13. EMLA [Suspect]
     Active Substance: LIDOCAINE\PRILOCAINE
     Indication: Injection site pain
  14. COLCHICINE [Concomitant]
     Active Substance: COLCHICINE
     Indication: Product used for unknown indication
  15. HYDROXYCHLOROQUINE [Concomitant]
     Active Substance: HYDROXYCHLOROQUINE
     Indication: Product used for unknown indication
  16. INSULIN NOS [Concomitant]
     Active Substance: INSULIN NOS
     Indication: Type 1 diabetes mellitus
  17. INSULIN ASPART [Concomitant]
     Active Substance: INSULIN ASPART
     Indication: Type 1 diabetes mellitus
  18. INSULIN DEGLUDEC [Concomitant]
     Active Substance: INSULIN DEGLUDEC
     Indication: Type 1 diabetes mellitus
  19. INSULIN GLARGINE [Concomitant]
     Active Substance: INSULIN GLARGINE
     Indication: Type 1 diabetes mellitus
  20. INSULIN GLULISINE [Concomitant]
     Active Substance: INSULIN GLULISINE
     Indication: Type 1 diabetes mellitus
  21. INSULIN LISPRO [Concomitant]
     Active Substance: INSULIN LISPRO
     Indication: Type 1 diabetes mellitus
  22. METHOTREXATE [Concomitant]
     Active Substance: METHOTREXATE
     Indication: Product used for unknown indication
  23. TACROLIMUS [Concomitant]
     Active Substance: TACROLIMUS
     Indication: Product used for unknown indication

REACTIONS (3)
  - Condition aggravated [Unknown]
  - Therapy non-responder [Unknown]
  - Drug ineffective [Unknown]
